FAERS Safety Report 16308118 (Version 1)
Quarter: 2019Q2

REPORT INFORMATION
  Report Type: Spontaneous
  Country: US (occurrence: US)
  Receive Date: 20190514
  Receipt Date: 20190514
  Transmission Date: 20190711
  Serious: Yes (Disabling)
  Sender: FDA-Public Use
  Company Number: US-SA-2019SA129774

PATIENT
  Age: 32 Year
  Sex: Female

DRUGS (2)
  1. KEVZARA [Suspect]
     Active Substance: SARILUMAB
     Indication: SPONDYLOARTHROPATHY
     Dosage: UNK
     Dates: start: 2018
  2. KEVZARA [Suspect]
     Active Substance: SARILUMAB
     Dosage: 200 MG, QOW
     Route: 058
     Dates: start: 201811

REACTIONS (3)
  - Loss of personal independence in daily activities [Unknown]
  - Arthralgia [Unknown]
  - Product use in unapproved indication [Unknown]
